FAERS Safety Report 10534056 (Version 2)
Quarter: 2014Q4

REPORT INFORMATION
  Report Type: Report from Study
  Country: PL (occurrence: PL)
  Receive Date: 20141022
  Receipt Date: 20141022
  Transmission Date: 20150529
  Serious: Yes (Hospitalization, Other)
  Sender: FDA-Public Use
  Company Number: PL-GSKJP-KK201400625GSK1841157004

PATIENT
  Age: 71 Year
  Sex: Female
  Weight: 78 kg

DRUGS (14)
  1. STUDY MEDICATION [Suspect]
     Active Substance: UNSPECIFIED INGREDIENT
     Indication: CHRONIC LYMPHOCYTIC LEUKAEMIA
     Route: 048
     Dates: start: 20131022
  2. POTASSIUM [Concomitant]
     Active Substance: POTASSIUM
     Dates: start: 200505
  3. OFATUMUMAB [Suspect]
     Active Substance: OFATUMUMAB
     Indication: CHRONIC LYMPHOCYTIC LEUKAEMIA
     Dosage: 300MG 22 OCT 20131000MG 29 OCT 2013
     Route: 042
     Dates: start: 20131029
  4. ENTEROL [Concomitant]
  5. GLUCOSE [Concomitant]
     Active Substance: DEXTROSE
     Dates: start: 20131209, end: 20131209
  6. SOTALOL. [Concomitant]
     Active Substance: SOTALOL
     Dates: start: 200505
  7. NYSTATIN. [Concomitant]
     Active Substance: NYSTATIN
  8. NIFUROXAZIDE [Concomitant]
     Active Substance: NIFUROXAZIDE
     Dates: start: 20131209
  9. ISOTONIC SODIUM CHLORIDE SOLUTION [Concomitant]
     Active Substance: SODIUM CHLORIDE
     Dates: start: 20131209, end: 20131214
  10. NIMODIPINE. [Concomitant]
     Active Substance: NIMODIPINE
     Dates: start: 200505
  11. LOPERAMIDE [Concomitant]
     Active Substance: LOPERAMIDE
     Dates: start: 20131209, end: 20131213
  12. ATORVASTATINE [Concomitant]
     Active Substance: ATORVASTATIN
  13. FENOFIBRATE. [Concomitant]
     Active Substance: FENOFIBRATE
     Dates: start: 201209
  14. METRONIDAZOLE. [Concomitant]
     Active Substance: METRONIDAZOLE

REACTIONS (3)
  - Pneumonia [Unknown]
  - Diarrhoea [Recovered/Resolved]
  - Dehydration [Recovered/Resolved]

NARRATIVE: CASE EVENT DATE: 20131209
